FAERS Safety Report 24143291 (Version 5)
Quarter: 2024Q4

REPORT INFORMATION
  Report Type: Spontaneous
  Country: US (occurrence: US)
  Receive Date: 20240726
  Receipt Date: 20241106
  Transmission Date: 20250115
  Serious: No
  Sender: NOVARTIS
  Company Number: US-002147023-NVSC2024US152899

PATIENT

DRUGS (1)
  1. COSENTYX [Suspect]
     Active Substance: SECUKINUMAB
     Indication: Psoriasis
     Dosage: 300 MG, QMO
     Route: 058

REACTIONS (4)
  - Device malfunction [Not Recovered/Not Resolved]
  - Device failure [Not Recovered/Not Resolved]
  - Device leakage [Not Recovered/Not Resolved]
  - Accidental exposure to product [Not Recovered/Not Resolved]
